FAERS Safety Report 12458668 (Version 1)
Quarter: 2016Q2

REPORT INFORMATION
  Report Type: Spontaneous
  Country: US (occurrence: None)
  Receive Date: 20160610
  Receipt Date: 20160610
  Transmission Date: 20160815
  Serious: Yes (Hospitalization)
  Sender: FDA-Public Use
  Company Number: None

PATIENT
  Age: 12 Year
  Sex: Female
  Weight: 52.3 kg

DRUGS (24)
  1. MERCAPTOPURINE. [Suspect]
     Active Substance: MERCAPTOPURINE
     Dates: end: 20160506
  2. CHLORHEXIDINE [Concomitant]
     Active Substance: CHLORHEXIDINE
  3. OLANZAPINE. [Concomitant]
     Active Substance: OLANZAPINE
  4. PANTOPRAZOLE SODIUM. [Concomitant]
     Active Substance: PANTOPRAZOLE SODIUM
  5. DAUNORUBICIN [Suspect]
     Active Substance: DAUNORUBICIN
     Dates: end: 20160203
  6. METHOTREXATE [Suspect]
     Active Substance: METHOTREXATE
     Dates: end: 20160502
  7. BACTRIM [Concomitant]
     Active Substance: SULFAMETHOXAZOLE\TRIMETHOPRIM
  8. PREDNISONE. [Suspect]
     Active Substance: PREDNISONE
     Dates: end: 20160209
  9. CYCLOPHOSPHAMIDE. [Suspect]
     Active Substance: CYCLOPHOSPHAMIDE
     Dates: end: 20160401
  10. CETIRIZINE [Concomitant]
     Active Substance: CETIRIZINE HYDROCHLORIDE
  11. DIPHENHYDRAMINE. [Concomitant]
     Active Substance: DIPHENHYDRAMINE
  12. ONCASPAR [Suspect]
     Active Substance: PEGASPARGASE
     Dates: end: 20160419
  13. CYTARABINE. [Suspect]
     Active Substance: CYTARABINE
     Dates: end: 20160311
  14. OXYCODONE [Concomitant]
     Active Substance: OXYCODONE
  15. ETOPOSIDE (VP-16) [Suspect]
     Active Substance: ETOPOSIDE
     Dates: end: 20160401
  16. MONTELUKAST SODIUM. [Concomitant]
     Active Substance: MONTELUKAST SODIUM
  17. TOPIRAMATE. [Concomitant]
     Active Substance: TOPIRAMATE
  18. VINCRISTINE SULFATE. [Suspect]
     Active Substance: VINCRISTINE SULFATE
     Dates: end: 20160502
  19. BUTALBITAL-ASA-CAFF-CODEINE [Concomitant]
  20. ONDANSETRON [Concomitant]
     Active Substance: ONDANSETRON
  21. PROCHLORPERAZINE. [Concomitant]
     Active Substance: PROCHLORPERAZINE
  22. VORICONAZOLE. [Concomitant]
     Active Substance: VORICONAZOLE
  23. POTASSIUM CHLORIDE. [Concomitant]
     Active Substance: POTASSIUM CHLORIDE
  24. SUCRALFATE. [Concomitant]
     Active Substance: SUCRALFATE

REACTIONS (7)
  - Jaundice [None]
  - Liver function test increased [None]
  - Hepatomegaly [None]
  - Gamma-glutamyltransferase increased [None]
  - Hepatotoxicity [None]
  - Fatigue [None]
  - Hyperbilirubinaemia [None]

NARRATIVE: CASE EVENT DATE: 20160513
